FAERS Safety Report 10577820 (Version 1)
Quarter: 2014Q4

REPORT INFORMATION
  Report Type: Spontaneous
  Country: US (occurrence: US)
  Receive Date: 20141111
  Receipt Date: 20141111
  Transmission Date: 20150529
  Serious: No
  Sender: FDA-Public Use
  Company Number: US-MALLINCKRODT-T201403709

PATIENT
  Age: 57 Year
  Sex: Female
  Weight: 72.56 kg

DRUGS (2)
  1. PENNSAID [Suspect]
     Active Substance: DICLOFENAC SODIUM
     Indication: NEURALGIA
     Dosage: 20 MG/1G, 2 PUMPS, BID
     Route: 061
     Dates: start: 20141006
  2. VICODIN [Concomitant]
     Active Substance: ACETAMINOPHEN\HYDROCODONE BITARTRATE
     Indication: PAIN
     Dosage: 7.5/325 MG, TID PRN
     Route: 048

REACTIONS (6)
  - Application site paraesthesia [Recovering/Resolving]
  - Application site discolouration [Recovering/Resolving]
  - Product use issue [Unknown]
  - Application site pruritus [Recovering/Resolving]
  - Liquid product physical issue [Unknown]
  - Application site pain [Recovering/Resolving]

NARRATIVE: CASE EVENT DATE: 20141006
